FAERS Safety Report 9945476 (Version 1)
Quarter: 2014Q1

REPORT INFORMATION
  Report Type: Spontaneous
  Country: US (occurrence: US)
  Receive Date: 20140303
  Receipt Date: 20140303
  Transmission Date: 20141002
  Serious: No
  Sender: FDA-Public Use
  Company Number: US-AMGEN-USASP2013074957

PATIENT
  Age: 34 Year
  Sex: Male
  Weight: 79.37 kg

DRUGS (5)
  1. ENBREL [Suspect]
     Indication: PRODUCT USED FOR UNKNOWN INDICATION
     Dosage: 50 MG, QWK
     Route: 058
  2. LISINOPRIL [Concomitant]
     Dosage: 20 MG, UNK
  3. AMLODIPINE [Concomitant]
     Dosage: 2.5 MG, UNK
  4. CELEBREX [Concomitant]
     Dosage: 200 MG, UNK
  5. PREDNISONE [Concomitant]
     Dosage: 1 MG, UNK

REACTIONS (1)
  - Influenza [Recovered/Resolved]
